FAERS Safety Report 8538465-6 (Version None)
Quarter: 2012Q3

REPORT INFORMATION
  Report Type: 
  Country: None (occurrence: None)
  Receive Date: 20120718
  Receipt Date: 20120718
  Transmission Date: 20120928
  Serious: Yes (Other)
  Sender: FDA-Public Use
  Company Number: None

PATIENT
  Age: 79 Year
  Sex: Female
  Weight: 64.8644 kg

DRUGS (1)
  1. NEXIUM - ESOMEPRAZOLE MAGNESUM 20 MG -ASTRA ZENECA [Suspect]
     Indication: GASTROOESOPHAGEAL REFLUX DISEASE
     Dosage: 20 MG ONE DAY PO
     Route: 048
     Dates: start: 20120312, end: 20120529

REACTIONS (17)
  - ANOSMIA [None]
  - EAR PAIN [None]
  - PRURITUS [None]
  - INFLUENZA [None]
  - SCAR [None]
  - EAR INFECTION [None]
  - DRY SKIN [None]
  - RASH VESICULAR [None]
  - DECREASED APPETITE [None]
  - SKIN EXFOLIATION [None]
  - HYPOACUSIS [None]
  - DRUG HYPERSENSITIVITY [None]
  - STEVENS-JOHNSON SYNDROME [None]
  - AGEUSIA [None]
  - MALAISE [None]
  - MIDDLE EAR EFFUSION [None]
  - WEIGHT DECREASED [None]
